FAERS Safety Report 4819732-6 (Version None)
Quarter: 2005Q4

REPORT INFORMATION
  Report Type: 
  Country: None (occurrence: None)
  Receive Date: 20051102
  Receipt Date: 20051024
  Transmission Date: 20060501
  Serious: Yes (Hospitalization, Other)
  Sender: FDA-Public Use
  Company Number: 2005146639

PATIENT
  Sex: Female
  Weight: 81.6475 kg

DRUGS (11)
  1. CELEBREX [Suspect]
     Indication: ARTHRALGIA
     Dosage: ORAL
     Route: 048
  2. NORVASC [Suspect]
     Indication: HYPERTENSION
     Dosage: 5 MG (5 MG, 2 IN 1 D), ORAL
     Route: 048
     Dates: start: 20050101
  3. LIPITOR [Suspect]
     Indication: BLOOD CHOLESTEROL INCREASED
     Dosage: 20 MG (20 MG, 1 IN 1 D), ORAL
     Route: 048
     Dates: start: 20050101
  4. VIOXX [Suspect]
     Indication: ILL-DEFINED DISORDER
  5. XANAX [Concomitant]
  6. METOPROLOL TARTRATE [Concomitant]
  7. TEA, GREEN (TEA, GREEN) [Concomitant]
  8. DHEA (PRASTERONE) [Concomitant]
  9. TYLENOL ARTHRITIS (PARACETAMOL) [Concomitant]
  10. VITAMIN B12 [Concomitant]
  11. FISH OIL (FISH OIL) [Concomitant]

REACTIONS (6)
  - BLOOD CHOLESTEROL INCREASED [None]
  - CARDIAC FAILURE CONGESTIVE [None]
  - HYPERTENSION [None]
  - PRURITUS [None]
  - RASH [None]
  - SUNBURN [None]
